APPROVED DRUG PRODUCT: CARBAMAZEPINE
Active Ingredient: CARBAMAZEPINE
Strength: 100MG/5ML
Dosage Form/Route: SUSPENSION;ORAL
Application: A075875 | Product #001
Applicant: TARO PHARMACEUTICAL INDUSTRIES LTD
Approved: Dec 21, 2000 | RLD: No | RS: No | Type: DISCN